FAERS Safety Report 17484012 (Version 1)
Quarter: 2020Q1

REPORT INFORMATION
  Report Type: Spontaneous
  Country: US (occurrence: US)
  Receive Date: 20200302
  Receipt Date: 20200302
  Transmission Date: 20200409
  Serious: No
  Sender: FDA-Public Use
  Company Number: US-ANIPHARMA-2019-US-007531

PATIENT
  Age: 69 Year
  Sex: Male
  Weight: 113.4 kg

DRUGS (7)
  1. GLYBURIDE 10MG [Concomitant]
     Dosage: 10 MG PO QD
     Route: 048
  2. CASODEX [Suspect]
     Active Substance: BICALUTAMIDE
     Indication: PROSTATE CANCER
     Dosage: ONE TABLET DAILY
     Route: 048
     Dates: start: 20171117, end: 20180913
  3. TAMSULOSIN 8 MG [Concomitant]
     Dosage: 8MG PO QD
     Route: 048
  4. TRELSTAR [Suspect]
     Active Substance: TRIPTORELIN PAMOATE
     Dosage: INJECTION ON 11/17/17, 3/2018, 6/2018 + 9/2018
     Route: 030
     Dates: start: 20181117, end: 201809
  5. METFORMIN [Concomitant]
     Active Substance: METFORMIN HYDROCHLORIDE
     Dosage: 2 CAP PO QD
     Route: 048
  6. RAMIPRIL 10 MG [Concomitant]
     Dosage: 10 MG PO QD
     Route: 048
  7. RADIATION TREATMENT [Suspect]
     Active Substance: RADIATION THERAPY
     Dosage: 5 DAYS A WEEK FOR 8 WEEKS
     Dates: start: 20180204, end: 20180406

REACTIONS (6)
  - Cough [Not Recovered/Not Resolved]
  - Hyperhidrosis [Not Recovered/Not Resolved]
  - Penis disorder [Not Recovered/Not Resolved]
  - Gynaecomastia [Not Recovered/Not Resolved]
  - Hot flush [Not Recovered/Not Resolved]
  - Muscle atrophy [Not Recovered/Not Resolved]

NARRATIVE: CASE EVENT DATE: 201711
